FAERS Safety Report 8141301-3 (Version None)
Quarter: 2012Q1

REPORT INFORMATION
  Report Type: 
  Country: None (occurrence: None)
  Receive Date: 20120216
  Receipt Date: 20120206
  Transmission Date: 20120608
  Serious: Yes (Other)
  Sender: FDA-Public Use
  Company Number: US-ELI_LILLY_AND_COMPANY-US200908003744

PATIENT
  Sex: Male

DRUGS (13)
  1. PAXIL [Concomitant]
  2. VALIUM [Concomitant]
  3. ZYPREXA [Suspect]
     Indication: BIPOLAR I DISORDER
     Dosage: 5 MG, EACH EVENING
     Dates: start: 20050204, end: 20050623
  4. XANAX [Concomitant]
  5. WELLBUTRIN [Concomitant]
  6. ZYPREXA [Suspect]
     Dosage: 10 MG, EACH EVENING
  7. SEROQUEL [Concomitant]
  8. LEXAPRO [Concomitant]
  9. CYMBALTA [Concomitant]
     Dosage: 30 MG, UNK
  10. GEODON [Concomitant]
  11. LAMICTAL [Concomitant]
  12. DEPAKOTE [Concomitant]
  13. ZYPREXA [Suspect]
     Dosage: 20 MG, EACH EVENING

REACTIONS (8)
  - WEIGHT INCREASED [None]
  - CONVULSION [None]
  - SLEEP APNOEA SYNDROME [None]
  - HEPATIC ENZYME INCREASED [None]
  - DIABETES MELLITUS [None]
  - HYPERTENSION [None]
  - ERECTILE DYSFUNCTION [None]
  - PARAESTHESIA [None]
